FAERS Safety Report 7810779-4 (Version None)
Quarter: 2011Q4

REPORT INFORMATION
  Report Type: 
  Country: None (occurrence: None)
  Receive Date: 20111006
  Receipt Date: 20110901
  Transmission Date: 20120403
  Serious: Yes (Other)
  Sender: FDA-Public Use
  Company Number: 20110636

PATIENT
  Age: 69 Year
  Sex: Male
  Weight: 81.6475 kg

DRUGS (2)
  1. EPINEPHRINE [Suspect]
     Indication: INTRAOPERATIVE CARE
     Dosage: 1:1000, ONCE
     Dates: start: 20110725, end: 20110725
  2. EPINEPHRINE [Suspect]
     Indication: CATARACT OPERATION
     Dosage: 1:1000, ONCE
     Dates: start: 20110725, end: 20110725

REACTIONS (1)
  - UNEVALUABLE EVENT [None]
